FAERS Safety Report 8582600-0 (Version None)
Quarter: 2012Q3

REPORT INFORMATION
  Report Type: 
  Country: None (occurrence: None)
  Receive Date: 20120809
  Receipt Date: 20120730
  Transmission Date: 20120928
  Serious: Yes (Life-Threatening, Hospitalization, Other)
  Sender: FDA-Public Use
  Company Number: DE-ROCHE-1097144

PATIENT
  Sex: Male
  Weight: 86 kg

DRUGS (1)
  1. MIRCERA [Suspect]
     Indication: ANAEMIA
     Dosage: LAST DOSE PRIOR TO SAE: 07 JUN 2011
     Route: 058
     Dates: start: 20091202

REACTIONS (2)
  - CYTOMEGALOVIRUS INFECTION [None]
  - CEREBRAL INFARCTION [None]
